FAERS Safety Report 16016819 (Version 1)
Quarter: 2019Q1

REPORT INFORMATION
  Report Type: Spontaneous
  Country: US (occurrence: US)
  Receive Date: 20190228
  Receipt Date: 20190228
  Transmission Date: 20190418
  Serious: No
  Sender: FDA-Public Use
  Company Number: US-PFIZER INC-2019073031

PATIENT
  Age: 45 Year
  Sex: Female
  Weight: 79.38 kg

DRUGS (3)
  1. LYRICA [Suspect]
     Active Substance: PREGABALIN
     Indication: DIABETIC NEUROPATHY
     Dosage: 200 MG DAILY (50 MG CAPSULE IN THE MORNING AND AFTERNOON AND TWO AT NIGHT)
     Route: 048
     Dates: start: 2018
  2. LYRICA [Suspect]
     Active Substance: PREGABALIN
     Indication: SMALL FIBRE NEUROPATHY
     Dosage: 100 MG, 3X/DAY
     Route: 048
     Dates: start: 20190122
  3. LYRICA [Suspect]
     Active Substance: PREGABALIN
     Dosage: 350 MG, DAILY (100 MG IN THE MORNING, 100 MG IN THE AFTERNOON AND 150 MG IN THE EVENING)
     Route: 048
     Dates: start: 2019

REACTIONS (5)
  - Drug effect incomplete [Unknown]
  - Fatigue [Unknown]
  - Pain [Unknown]
  - Loss of personal independence in daily activities [Unknown]
  - Insomnia [Unknown]

NARRATIVE: CASE EVENT DATE: 201901
